FAERS Safety Report 8029574-9 (Version None)
Quarter: 2012Q1

REPORT INFORMATION
  Report Type: 
  Country: None (occurrence: None)
  Receive Date: 20120109
  Receipt Date: 20120105
  Transmission Date: 20120608
  Serious: No
  Sender: FDA-Public Use
  Company Number: US-PFIZER INC-2012004033

PATIENT
  Sex: Female
  Weight: 81.633 kg

DRUGS (2)
  1. CHANTIX [Suspect]
     Indication: SMOKING CESSATION THERAPY
     Dosage: 0.5 MG, 1X/DAY
     Route: 048
     Dates: start: 20111201
  2. CHANTIX [Suspect]
     Dosage: 1 MG, UNK
     Route: 048

REACTIONS (4)
  - NAUSEA [None]
  - FEELING JITTERY [None]
  - TREMOR [None]
  - MALAISE [None]
